FAERS Safety Report 17577040 (Version 1)
Quarter: 2020Q1

REPORT INFORMATION
  Report Type: Spontaneous
  Country: US (occurrence: US)
  Receive Date: 20200319
  Receipt Date: 20200319
  Transmission Date: 20200409
  Serious: No
  Sender: FDA-Public Use
  Company Number: None

PATIENT
  Age: 4 Month
  Sex: Male

DRUGS (1)
  1. KITABIS PAK [Suspect]
     Active Substance: TOBRAMYCIN
     Route: 055
     Dates: start: 202003

REACTIONS (2)
  - Product administered to patient of inappropriate age [None]
  - Off label use [None]

NARRATIVE: CASE EVENT DATE: 20200318
